FAERS Safety Report 5925929-4 (Version None)
Quarter: 2008Q4

REPORT INFORMATION
  Report Type: 
  Country: None (occurrence: None)
  Receive Date: 20081021
  Receipt Date: 20081017
  Transmission Date: 20090506
  Serious: Yes (Other)
  Sender: FDA-Public Use
  Company Number: TN-ROXANE LABORATORIES, INC.-2008-RO-00138RO

PATIENT
  Age: 41 Year
  Sex: Male

DRUGS (9)
  1. MERCAPTOPURINE [Suspect]
     Indication: ACUTE PROMYELOCYTIC LEUKAEMIA
     Route: 048
  2. METHOTREXATE [Suspect]
     Indication: ACUTE PROMYELOCYTIC LEUKAEMIA
     Route: 048
  3. ATRA [Suspect]
     Indication: ACUTE PROMYELOCYTIC LEUKAEMIA
     Route: 048
  4. ATRA [Suspect]
     Route: 048
  5. ATRA [Suspect]
  6. IDARUBICIN HCL [Suspect]
     Indication: ACUTE PROMYELOCYTIC LEUKAEMIA
     Route: 042
  7. IDARUBICIN HCL [Suspect]
  8. IDARUBICIN HCL [Suspect]
  9. MITOXANTRONE [Suspect]
     Indication: ACUTE PROMYELOCYTIC LEUKAEMIA

REACTIONS (1)
  - CHRONIC MYELOMONOCYTIC LEUKAEMIA [None]
